FAERS Safety Report 21012599 (Version 2)
Quarter: 2022Q3

REPORT INFORMATION
  Report Type: Spontaneous
  Country: US (occurrence: US)
  Receive Date: 20220627
  Receipt Date: 20220824
  Transmission Date: 20221027
  Serious: Yes (Other)
  Sender: FDA-Public Use
  Company Number: US-SA-2022SA218717

PATIENT

DRUGS (3)
  1. LARONIDASE [Suspect]
     Active Substance: LARONIDASE
     Indication: Mucopolysaccharidosis I
     Dosage: 2.09 MG, QW
     Route: 042
     Dates: start: 20220523
  2. LARONIDASE [Suspect]
     Active Substance: LARONIDASE
     Dosage: 2.9 MILLIGRAM, QW
     Route: 042
     Dates: start: 20220601
  3. LARONIDASE [Suspect]
     Active Substance: LARONIDASE
     Dosage: 2.9 MG, QW
     Route: 042
     Dates: start: 20220606

REACTIONS (1)
  - Haematochezia [Recovered/Resolved]

NARRATIVE: CASE EVENT DATE: 20220603
